FAERS Safety Report 16397982 (Version 1)
Quarter: 2019Q2

REPORT INFORMATION
  Report Type: Report from Study
  Country: JP (occurrence: JP)
  Receive Date: 20190606
  Receipt Date: 20190606
  Transmission Date: 20190711
  Serious: Yes (Other)
  Sender: FDA-Public Use
  Company Number: JP-TEVA-2019-JP-1059221

PATIENT
  Age: 56 Year
  Sex: Female

DRUGS (6)
  1. DAIKENCHUTO [Concomitant]
     Active Substance: HERBALS
     Route: 065
  2. CARBOPLATIN. [Suspect]
     Active Substance: CARBOPLATIN
     Indication: OVARIAN EPITHELIAL CANCER
     Dosage: AUC 6 MG/ML/MIN, DAY 1 OF EVERY 3-WEEK CYCLE
     Route: 065
  3. PACLITAXEL. [Suspect]
     Active Substance: PACLITAXEL
     Indication: OVARIAN EPITHELIAL CANCER
     Dosage: ON DAY 1 OF EVERY 3-WEEK CYCLE
     Route: 065
  4. APIXABAN [Concomitant]
     Active Substance: APIXABAN
     Indication: DEEP VEIN THROMBOSIS
     Dosage: FOR THE FIRST 7 DAYS, FOLLOWED BY REDUCTION TO A DOSE OF 10 MG/DAY
     Route: 048
  5. BEVACIZUMAB. [Suspect]
     Active Substance: BEVACIZUMAB
     Indication: OVARIAN EPITHELIAL CANCER
     Route: 041
  6. APIXABAN [Concomitant]
     Active Substance: APIXABAN
     Indication: DEEP VEIN THROMBOSIS
     Route: 048

REACTIONS (6)
  - Anaemia [Unknown]
  - Malaise [Unknown]
  - Alopecia [Unknown]
  - Peripheral sensory neuropathy [Unknown]
  - Neutropenia [Unknown]
  - Deep vein thrombosis [Unknown]
